FAERS Safety Report 4630269-X (Version None)
Quarter: 2005Q2

REPORT INFORMATION
  Report Type: 
  Country: None (occurrence: None)
  Receive Date: 20050408
  Receipt Date: 20050330
  Transmission Date: 20051028
  Serious: Yes (Hospitalization)
  Sender: FDA-Public Use
  Company Number: PHRM2005FR01216

PATIENT
  Age: 85 Year
  Sex: Male

DRUGS (12)
  1. SECTRAL [Suspect]
     Dosage: 200 MG/DAY
     Route: 048
     Dates: start: 19960101
  2. TRIATEC [Suspect]
     Dosage: 2.5 MG/DAY
     Route: 048
  3. ESIDRIX [Suspect]
     Indication: HYPERTENSION
     Dosage: 2 DF, QD
     Route: 048
     Dates: start: 20030101
  4. AMLOR [Suspect]
     Dosage: 10 MG/DAY
     Route: 048
  5. HYPERIUM [Suspect]
     Dosage: 1 DF, QD
     Route: 048
  6. JOSIR [Suspect]
     Dosage: 1 DF, QD
     Route: 048
     Dates: start: 20040715
  7. PLAVIX [Concomitant]
     Route: 048
  8. BETASERC [Concomitant]
  9. ACTONEL [Concomitant]
     Route: 048
  10. CORTANCYL [Concomitant]
     Route: 048
  11. AVODART [Concomitant]
     Route: 048
  12. MIXTARD HUMAN 70/30 [Concomitant]

REACTIONS (12)
  - ANAEMIA [None]
  - BLOOD CREATININE INCREASED [None]
  - DIFFICULTY IN WALKING [None]
  - DRUG INTERACTION [None]
  - ECCHYMOSIS [None]
  - FALL [None]
  - INJURY [None]
  - LOSS OF CONSCIOUSNESS [None]
  - MALAISE [None]
  - ORTHOSTATIC HYPOTENSION [None]
  - RENAL FAILURE [None]
  - WOUND [None]
